FAERS Safety Report 14852000 (Version 1)
Quarter: 2018Q2

REPORT INFORMATION
  Report Type: Spontaneous
  Country: US (occurrence: US)
  Receive Date: 20180420
  Receipt Date: 20180420
  Transmission Date: 20180711
  Serious: No
  Sender: FDA-Public Use
  Company Number: None

PATIENT
  Age: 26 Year
  Sex: Female
  Weight: 68.04 kg

DRUGS (4)
  1. VITAMIN D [Concomitant]
     Active Substance: CHOLECALCIFEROL
  2. VITAMIN C [Concomitant]
     Active Substance: ASCORBIC ACID
  3. PROAIR HFA [Suspect]
     Active Substance: ALBUTEROL SULFATE
     Indication: COUGH
     Dosage: QUANTITY:2 DF DOSAGE FORM;?
     Route: 048
     Dates: start: 20180402, end: 20180402
  4. ZINC. [Concomitant]
     Active Substance: ZINC

REACTIONS (5)
  - Eye pain [None]
  - Ocular hyperaemia [None]
  - Halo vision [None]
  - Eye discharge [None]
  - Hypersensitivity [None]

NARRATIVE: CASE EVENT DATE: 20180402
